FAERS Safety Report 4525022-1 (Version None)
Quarter: 2004Q4

REPORT INFORMATION
  Report Type: 
  Country: None (occurrence: None)
  Receive Date: 20041117
  Receipt Date: 20031023
  Transmission Date: 20050328
  Serious: Yes (Other)
  Sender: FDA-Public Use
  Company Number: C2003-2798.01

PATIENT
  Age: 51 Year
  Sex: Male

DRUGS (9)
  1. CLOZAPINE [Suspect]
     Indication: SCHIZOPHRENIA
     Dosage: 350MG QD, THEN 200MG HS, ORAL
     Route: 048
     Dates: start: 20031014, end: 20031020
  2. AMLODIPINE [Concomitant]
  3. ASPIRIN [Concomitant]
  4. CLONAZEPAM [Concomitant]
  5. DIVALPROEX SODIUM ER [Concomitant]
  6. DOCUSATE SODIUM [Concomitant]
  7. HYDROCHLOROTHIAZIDE [Concomitant]
  8. MULTI-VITAMIN [Concomitant]
  9. ZOLPIDEM TARRATE [Concomitant]

REACTIONS (1)
  - NEUTROPENIA [None]
